FAERS Safety Report 19527799 (Version 1)
Quarter: 2021Q3

REPORT INFORMATION
  Report Type: Spontaneous
  Country: US (occurrence: US)
  Receive Date: 20210713
  Receipt Date: 20210713
  Transmission Date: 20211014
  Serious: No
  Sender: FDA-Public Use
  Company Number: US-PFIZER INC-2021703369

PATIENT
  Age: 79 Year
  Sex: Male
  Weight: 104.33 kg

DRUGS (2)
  1. LIPITOR [Suspect]
     Active Substance: ATORVASTATIN CALCIUM
     Dosage: UNK
  2. LIPITOR [Suspect]
     Active Substance: ATORVASTATIN CALCIUM
     Dosage: 80 MG, 1X/DAY, ONE TABLET BY MOUTH PER DAY
     Route: 048
     Dates: start: 2004

REACTIONS (1)
  - Memory impairment [Unknown]
